FAERS Safety Report 7515613-8 (Version None)
Quarter: 2011Q2

REPORT INFORMATION
  Report Type: 
  Country: None (occurrence: None)
  Receive Date: 20110601
  Receipt Date: 20100719
  Transmission Date: 20111010
  Serious: Yes (Other)
  Sender: FDA-Public Use
  Company Number: US-PFIZER INC-2010090144

PATIENT
  Sex: Male
  Weight: 68.027 kg

DRUGS (2)
  1. COMBIVENT [Suspect]
     Indication: DYSPNOEA
     Dosage: UNK
     Route: 055
  2. CHANTIX [Suspect]
     Indication: SMOKING CESSATION THERAPY
     Dosage: UNK
     Route: 048

REACTIONS (3)
  - DYSPNOEA [None]
  - FATIGUE [None]
  - DRUG INTERACTION [None]
